FAERS Safety Report 20748403 (Version 1)
Quarter: 2022Q2

REPORT INFORMATION
  Report Type: Other
  Country: CA (occurrence: CA)
  Receive Date: 20220426
  Receipt Date: 20220426
  Transmission Date: 20220720
  Serious: Yes (Disabling, Other)
  Sender: FDA-Public Use
  Company Number: CA-APOTEX-2021AP046103

PATIENT
  Sex: Female
  Weight: 77 kg

DRUGS (9)
  1. RISPERIDONE [Suspect]
     Active Substance: RISPERIDONE
     Indication: Psychotic disorder
     Dosage: UNK
     Route: 065
  2. DIAZEPAM [Suspect]
     Active Substance: DIAZEPAM
     Indication: Bipolar disorder
     Dosage: 750 MILLIGRAM
     Route: 065
  3. CELECOXIB [Suspect]
     Active Substance: CELECOXIB
     Indication: Bipolar disorder
     Dosage: 20 MILLIGRAM
     Route: 065
  4. EPIVAL [Suspect]
     Active Substance: DIVALPROEX SODIUM
     Indication: Bipolar disorder
     Dosage: 750 MILLIGRAM
     Route: 065
  5. ABILIFY MAINTENA [Suspect]
     Active Substance: ARIPIPRAZOLE
     Indication: Psychotic disorder
     Dosage: 400 MILLIGRAM
     Route: 030
  6. ASPIRIN [Concomitant]
     Active Substance: ASPIRIN
     Indication: Product used for unknown indication
     Dosage: UNK
     Route: 065
  7. CALCIUM CITRATE;MAGNESIUM CITRATE [Concomitant]
     Indication: Product used for unknown indication
     Dosage: UNK
     Route: 065
  8. DOCONEXENT\ICOSAPENT [Concomitant]
     Active Substance: DOCONEXENT\ICOSAPENT
     Indication: Product used for unknown indication
     Dosage: UNK
     Route: 065
  9. CELECOXIB [Suspect]
     Active Substance: CELECOXIB
     Indication: Bipolar disorder
     Dosage: 20 MILLIGRAM
     Route: 065

REACTIONS (6)
  - Product use in unapproved indication [Unknown]
  - Pain in extremity [Unknown]
  - Urinary incontinence [Unknown]
  - Weight increased [Unknown]
  - Fatigue [Unknown]
  - Somnolence [Unknown]
